FAERS Safety Report 7534302-7 (Version None)
Quarter: 2011Q2

REPORT INFORMATION
  Report Type: 
  Country: None (occurrence: None)
  Receive Date: 20110608
  Receipt Date: 20070112
  Transmission Date: 20111010
  Serious: Yes (Hospitalization)
  Sender: FDA-Public Use
  Company Number: PHRM2006AU01087

PATIENT
  Sex: Female

DRUGS (2)
  1. CLOZAPINE [Suspect]
     Dosage: 800 MG, QD
     Route: 048
  2. CLOZAPINE [Suspect]
     Dosage: 12.5 MG, QD
     Route: 048
     Dates: start: 20020614

REACTIONS (1)
  - INTESTINAL FUNCTIONAL DISORDER [None]
